FAERS Safety Report 14759389 (Version 1)
Quarter: 2018Q2

REPORT INFORMATION
  Report Type: Report from Study
  Country: US (occurrence: US)
  Receive Date: 20180413
  Receipt Date: 20180413
  Transmission Date: 20180711
  Serious: Yes (Hospitalization)
  Sender: FDA-Public Use
  Company Number: US-BAYER-2018-029488

PATIENT
  Age: 52 Year
  Sex: Female

DRUGS (2)
  1. NEXAVAR [Suspect]
     Active Substance: SORAFENIB
     Indication: SOFT TISSUE SARCOMA
     Dosage: 200 MG, BID
     Route: 048
     Dates: start: 20180310
  2. NEXAVAR [Suspect]
     Active Substance: SORAFENIB
     Indication: SOFT TISSUE SARCOMA
     Dosage: DAILY DOSE 600 MG
     Route: 048
     Dates: start: 20180202, end: 2018

REACTIONS (4)
  - Transfusion [None]
  - Product use in unapproved indication [None]
  - Influenza [None]
  - Off label use [None]

NARRATIVE: CASE EVENT DATE: 2018
